FAERS Safety Report 8094840-8 (Version None)
Quarter: 2012Q1

REPORT INFORMATION
  Report Type: 
  Country: None (occurrence: None)
  Receive Date: 20120129
  Receipt Date: 20120125
  Transmission Date: 20120608
  Serious: Yes (Other)
  Sender: FDA-Public Use
  Company Number: US-VERTEX PHARMACEUTICALS INC.-AE-2012-001369

PATIENT
  Sex: Male

DRUGS (6)
  1. PEGASYS [Concomitant]
     Indication: HEPATITIS C
     Route: 058
     Dates: start: 20111201, end: 20120101
  2. INCIVEK [Suspect]
     Indication: HEPATITIS C
     Route: 048
     Dates: start: 20111201, end: 20120101
  3. XANAX [Concomitant]
     Indication: ANXIETY
  4. OPANA [Concomitant]
     Indication: PAIN
  5. RIBAVIRIN [Concomitant]
     Indication: HEPATITIS C
     Route: 048
     Dates: start: 20111201, end: 20120101
  6. ZOLOFT [Concomitant]
     Indication: DEPRESSION

REACTIONS (10)
  - ANORECTAL DISCOMFORT [None]
  - WEIGHT DECREASED [None]
  - DYSGEUSIA [None]
  - HALLUCINATION [None]
  - DEPRESSION [None]
  - INSOMNIA [None]
  - SUICIDAL IDEATION [None]
  - OROPHARYNGEAL PAIN [None]
  - HAEMATOCHEZIA [None]
  - HAEMORRHOIDS [None]
